FAERS Safety Report 25682480 (Version 1)
Quarter: 2025Q3

REPORT INFORMATION
  Report Type: Spontaneous
  Country: GB (occurrence: GB)
  Receive Date: 20250814
  Receipt Date: 20250814
  Transmission Date: 20251020
  Serious: Yes (Other)
  Sender: HETERO
  Company Number: GB-MHRA-36297863

PATIENT

DRUGS (4)
  1. ARIPIPRAZOLE [Suspect]
     Active Substance: ARIPIPRAZOLE
     Indication: Product used for unknown indication
     Route: 065
  2. DULOXETINE [Suspect]
     Active Substance: DULOXETINE
     Indication: Product used for unknown indication
     Route: 065
  3. TRAMADOL [Concomitant]
     Active Substance: TRAMADOL
     Indication: Product used for unknown indication
     Route: 065
  4. LARIAM [MEFLOQUINE] [Concomitant]
     Indication: Product used for unknown indication
     Route: 065

REACTIONS (3)
  - Paralysis [Unknown]
  - Toxicity to various agents [Unknown]
  - Product odour abnormal [Unknown]
